FAERS Safety Report 8365825-9 (Version None)
Quarter: 2012Q2

REPORT INFORMATION
  Report Type: 
  Country: None (occurrence: None)
  Receive Date: 20120517
  Receipt Date: 20120508
  Transmission Date: 20120825
  Serious: Yes (Other)
  Sender: FDA-Public Use
  Company Number: BR-BRISTOL-MYERS SQUIBB COMPANY-16584229

PATIENT
  Age: 49 Year
  Sex: Female
  Weight: 89 kg

DRUGS (3)
  1. IRBESARTAN [Suspect]
     Indication: HYPERTENSION
     Dosage: 2 TABS
     Route: 048
     Dates: start: 20090101
  2. CARBAMAZEPINE [Concomitant]
     Indication: EPILEPSY
     Dosage: 2 TABS
     Route: 048
     Dates: start: 19770101
  3. SIMVASTATIN [Concomitant]
     Dosage: 1 TABS QD AT NIGHT
     Dates: start: 20100101

REACTIONS (2)
  - VARICOSE VEIN [None]
  - EXTREMITY NECROSIS [None]
